FAERS Safety Report 5161740-2 (Version None)
Quarter: 2006Q4

REPORT INFORMATION
  Report Type: 
  Country: None (occurrence: None)
  Receive Date: 20061130
  Receipt Date: 20061027
  Transmission Date: 20070319
  Serious: Yes (Hospitalization)
  Sender: FDA-Public Use
  Company Number: IT-GLAXOSMITHKLINE-B0445143A

PATIENT
  Age: 24 Year
  Sex: Male

DRUGS (2)
  1. AMOXICILLIN + CLAVULANATE POTASSIUM [Suspect]
     Dosage: 1G TWICE PER DAY
     Route: 048
     Dates: start: 20061011, end: 20061019
  2. ACETAMINOPHEN [Concomitant]
     Dosage: 500MG UNKNOWN
     Route: 048
     Dates: start: 20061011, end: 20061019

REACTIONS (7)
  - ABDOMINAL PAIN [None]
  - HEPATITIS ACUTE [None]
  - INFECTIOUS MONONUCLEOSIS [None]
  - JAUNDICE [None]
  - PYREXIA [None]
  - STOMATITIS [None]
  - TONSILLITIS [None]
